FAERS Safety Report 19408188 (Version 1)
Quarter: 2021Q2

REPORT INFORMATION
  Report Type: Spontaneous
  Country: HR (occurrence: HR)
  Receive Date: 20210611
  Receipt Date: 20210611
  Transmission Date: 20210717
  Serious: Yes (Death)
  Sender: FDA-Public Use
  Company Number: HR-PFIZER INC-2021618589

PATIENT

DRUGS (5)
  1. CEOP [CYCLOPHOSPHAMIDE] [Suspect]
     Active Substance: CYCLOPHOSPHAMIDE
     Indication: DIFFUSE LARGE B-CELL LYMPHOMA
     Dosage: UNK
  2. CEOP [EPIRUBICIN] [Suspect]
     Active Substance: EPIRUBICIN
  3. RITUXIMAB. [Suspect]
     Active Substance: RITUXIMAB
     Indication: DIFFUSE LARGE B-CELL LYMPHOMA
     Dosage: UNK
  4. CEOP [VINCRISTINE] [Suspect]
     Active Substance: VINCRISTINE
  5. CEOP [PREDNISONE] [Suspect]
     Active Substance: PREDNISONE

REACTIONS (1)
  - Toxicity to various agents [Fatal]
